FAERS Safety Report 6433328-4 (Version None)
Quarter: 2009Q4

REPORT INFORMATION
  Report Type: 
  Country: None (occurrence: None)
  Receive Date: 20091109
  Receipt Date: 20091026
  Transmission Date: 20100525
  Serious: Yes (Hospitalization, Disabling)
  Sender: FDA-Public Use
  Company Number: JP-AMGEN-US370125

PATIENT
  Sex: Female
  Weight: 40 kg

DRUGS (17)
  1. ENBREL [Suspect]
     Indication: RHEUMATOID ARTHRITIS
     Route: 058
  2. ENBREL [Suspect]
     Dosage: LYOPHILIZED: 25 MG TWICE WEEKLY
     Route: 058
     Dates: start: 20050629
  3. PROGRAF [Suspect]
     Indication: RHEUMATOID ARTHRITIS
     Route: 048
     Dates: start: 20060701
  4. RHEUMATREX [Suspect]
     Indication: RHEUMATOID ARTHRITIS
     Route: 048
     Dates: start: 20010101
  5. FOLIAMIN [Concomitant]
     Route: 048
  6. LOXONIN [Concomitant]
     Route: 048
     Dates: start: 20000101
  7. FAMOTIDINE [Concomitant]
     Route: 048
  8. BONALON [Concomitant]
     Route: 048
  9. ONE-ALPHA [Concomitant]
     Route: 048
  10. ASPARA-CA [Concomitant]
  11. IMIGRAN [Concomitant]
     Dosage: 100 MG, FREQUENCY UNSPECIFIED
     Route: 048
  12. TRYPTANOL [Concomitant]
     Route: 048
  13. HERBAL PREPARATION [Concomitant]
     Route: 048
  14. HERBAL PREPARATION [Concomitant]
     Dosage: 2 DOSES, FREQUENCY UNSPECIFIED
     Route: 048
  15. HERBAL EXTRACTS NOS [Concomitant]
     Route: 048
  16. ACONITE [Concomitant]
     Route: 048
  17. RHUBARB DRY EXTRACT [Concomitant]
     Route: 048

REACTIONS (7)
  - ACUTE RESPIRATORY DISTRESS SYNDROME [None]
  - ALTERED STATE OF CONSCIOUSNESS [None]
  - DRUG LEVEL INCREASED [None]
  - HEADACHE [None]
  - INFLUENZA [None]
  - PNEUMOCYSTIS JIROVECI PNEUMONIA [None]
  - SYNOVECTOMY [None]
